FAERS Safety Report 25771622 (Version 1)
Quarter: 2025Q3

REPORT INFORMATION
  Report Type: Spontaneous
  Country: US (occurrence: US)
  Receive Date: 20250908
  Receipt Date: 20250908
  Transmission Date: 20251021
  Serious: No
  Sender: DOMPE FARMACEUTICI
  Company Number: US-FARMAPROD-202505-1519

PATIENT
  Sex: Male
  Weight: 77.11 kg

DRUGS (9)
  1. OXERVATE [Suspect]
     Active Substance: CENEGERMIN-BKBJ
     Indication: Neurotrophic keratopathy
     Route: 047
     Dates: start: 20250310
  2. ARTIFICIAL TEARS [CARMELLOSE SODIUM] [Concomitant]
  3. LATANOPROST [Concomitant]
     Active Substance: LATANOPROST
  4. BRIMONIDINE TARTRATE [Concomitant]
     Active Substance: BRIMONIDINE TARTRATE
  5. OFLOXACIN [Concomitant]
     Active Substance: OFLOXACIN
  6. NEXIUM [Concomitant]
     Active Substance: ESOMEPRAZOLE MAGNESIUM
  7. SIMVASTATIN [Concomitant]
     Active Substance: SIMVASTATIN
  8. VITAMINS [Concomitant]
     Active Substance: VITAMINS
  9. COLACE CLEAR [Concomitant]
     Active Substance: DOCUSATE SODIUM

REACTIONS (5)
  - Eye swelling [Not Recovered/Not Resolved]
  - Eye pain [Not Recovered/Not Resolved]
  - Eye irritation [Not Recovered/Not Resolved]
  - Foreign body sensation in eyes [Unknown]
  - Ocular discomfort [Unknown]
